FAERS Safety Report 9627113 (Version 2)
Quarter: 2013Q4

REPORT INFORMATION
  Report Type: Spontaneous
  Country: US (occurrence: None)
  Receive Date: 20131011
  Receipt Date: 20131112
  Transmission Date: 20140711
  Serious: Yes (Life-Threatening, Hospitalization)
  Sender: FDA-Public Use
  Company Number: 2013STPI000404

PATIENT
  Age: 73 Year
  Sex: Female
  Weight: 55.3 kg

DRUGS (14)
  1. MATULANE [Suspect]
     Indication: NON-HODGKIN^S LYMPHOMA
     Route: 048
     Dates: start: 20120622
  2. WARFARIN SODIUM [Suspect]
     Indication: PRODUCT USED FOR UNKNOWN INDICATION
  3. PLAVIX (CLOPIDOGREL SULFATE) [Suspect]
     Indication: PRODUCT USED FOR UNKNOWN INDICATION
  4. ASPIRIN [Suspect]
     Indication: PRODUCT USED FOR UNKNOWN INDICATION
  5. COZAAR [Concomitant]
  6. SOMA (CARISOPRODOL) [Concomitant]
  7. LIPITOR (ATORVASTATIN CALCIUM) [Concomitant]
  8. VICODIN (HYDROCONE BITARTRATE, PARACETAMOL) [Concomitant]
  9. IMDUR (ISOSORBIDE MONOTIRATE) [Concomitant]
  10. PROCHLOROPERAZINE EDISYLATE (PROCHLORPERAZINE EDISYLATE) [Concomitant]
  11. ATIVAN (LORAZEPAM) [Concomitant]
  12. COLACE [Concomitant]
  13. VITAMIN D3 (COLECALIFEROL) [Concomitant]
  14. MELATONIN (MELATONIN) [Concomitant]

REACTIONS (2)
  - Cerebral haemorrhage [None]
  - Fall [None]
